FAERS Safety Report 4458048-7 (Version None)
Quarter: 2004Q3

REPORT INFORMATION
  Report Type: 
  Country: None (occurrence: None)
  Receive Date: 20040922
  Receipt Date: 20040906
  Transmission Date: 20050211
  Serious: Yes (Hospitalization)
  Sender: FDA-Public Use
  Company Number: EWC040940538

PATIENT
  Age: 35 Year
  Sex: Female

DRUGS (2)
  1. ZYPREXA [Suspect]
     Indication: PSYCHOTIC DISORDER
     Dosage: 15 MG DAY
     Dates: start: 20020101
  2. EN (DELORAZEPAM) [Concomitant]

REACTIONS (9)
  - AGITATION [None]
  - CONFUSIONAL STATE [None]
  - DYSPNOEA [None]
  - ECZEMA [None]
  - HYPERHIDROSIS [None]
  - LOGORRHOEA [None]
  - PARANOIA [None]
  - SWELLING FACE [None]
  - WEIGHT INCREASED [None]
